FAERS Safety Report 20045083 (Version 4)
Quarter: 2021Q4

REPORT INFORMATION
  Report Type: Report from Study
  Country: US (occurrence: US)
  Receive Date: 20211108
  Receipt Date: 20211202
  Transmission Date: 20220303
  Serious: Yes (Hospitalization, Other)
  Sender: FDA-Public Use
  Company Number: US-BAYER-2021A244119

PATIENT
  Age: 62 Year
  Sex: Male
  Weight: 88.435 kg

DRUGS (6)
  1. ADEMPAS [Suspect]
     Active Substance: RIOCIGUAT
     Indication: Pulmonary arterial hypertension
     Dosage: UNK
     Dates: start: 20210505
  2. ADEMPAS [Suspect]
     Active Substance: RIOCIGUAT
     Indication: Pulmonary arterial hypertension
     Dosage: 2.5 MG, TID
     Route: 048
     Dates: start: 2021
  3. AMBRISENTAN [Concomitant]
     Active Substance: AMBRISENTAN
     Dosage: 10 MG, QD
  4. ELIQUIS [Concomitant]
     Active Substance: APIXABAN
     Dosage: UNK
  5. REMODULIN [Concomitant]
     Active Substance: TREPROSTINIL
     Dosage: UNK
     Dates: start: 2021
  6. ORENITRAM [Concomitant]
     Active Substance: TREPROSTINIL
     Dosage: 3.125 MG, TID

REACTIONS (5)
  - Hospitalisation [Recovered/Resolved]
  - Hypotension [None]
  - Abdominal distension [None]
  - Flatulence [None]
  - Catheterisation cardiac [None]

NARRATIVE: CASE EVENT DATE: 20210101
